FAERS Safety Report 4788513-4 (Version None)
Quarter: 2005Q3

REPORT INFORMATION
  Report Type: 
  Country: None (occurrence: None)
  Receive Date: 20050915
  Receipt Date: 20050517
  Transmission Date: 20060218
  Serious: No
  Sender: FDA-Public Use
  Company Number: BDI-007206

PATIENT
  Age: 44 Year
  Sex: Female

DRUGS (4)
  1. MULTIHANCE [Suspect]
     Indication: NUCLEAR MAGNETIC RESONANCE IMAGING
     Dosage: SY
     Dates: start: 20050517, end: 20050517
  2. MULTIHANCE [Suspect]
     Indication: UTERINE LEIOMYOMA
     Dosage: SY
     Dates: start: 20050517, end: 20050517
  3. MULTIHANCE [Suspect]
     Indication: NUCLEAR MAGNETIC RESONANCE IMAGING
     Dosage: SY
     Dates: start: 20050517, end: 20050517
  4. MULTIHANCE [Suspect]
     Indication: UTERINE LEIOMYOMA
     Dosage: SY
     Dates: start: 20050517, end: 20050517

REACTIONS (1)
  - URTICARIA [None]
